FAERS Safety Report 6917372-6 (Version None)
Quarter: 2010Q3

REPORT INFORMATION
  Report Type: 
  Country: None (occurrence: None)
  Receive Date: 20100810
  Receipt Date: 20100730
  Transmission Date: 20110219
  Serious: Yes (Hospitalization)
  Sender: FDA-Public Use
  Company Number: FR-WYE-H09577009

PATIENT
  Age: 70 Year
  Sex: Male

DRUGS (6)
  1. CORDARONE [Suspect]
     Dosage: 200 MG TABLET (DOSE AND REGIMEN UNKNOWN)
     Route: 048
     Dates: end: 20090201
  2. EUPRESSYL [Concomitant]
  3. COLCHIMAX [Concomitant]
  4. ZOCOR [Concomitant]
  5. SELOKEN [Concomitant]
  6. PREVISCAN [Concomitant]

REACTIONS (2)
  - ACUTE CORONARY SYNDROME [None]
  - HYPERTHYROIDISM [None]
